FAERS Safety Report 9617326 (Version 1)
Quarter: 2013Q4

REPORT INFORMATION
  Report Type: Spontaneous
  Country: US (occurrence: US)
  Receive Date: 20131011
  Receipt Date: 20131011
  Transmission Date: 20140711
  Serious: Yes (Life-Threatening, Hospitalization, Other)
  Sender: FDA-Public Use
  Company Number: US-BRISTOL-MYERS SQUIBB COMPANY-19485135

PATIENT
  Age: 68 Year
  Sex: Female

DRUGS (2)
  1. YERVOY [Suspect]
     Dosage: INFUSION
  2. LORTAB [Concomitant]

REACTIONS (3)
  - Large intestine perforation [Unknown]
  - White blood cell count decreased [Unknown]
  - Dehydration [Unknown]
